FAERS Safety Report 9235661 (Version 1)
Quarter: 2013Q1

REPORT INFORMATION
  Report Type: Spontaneous
  Country: US (occurrence: None)
  Receive Date: 20121031
  Receipt Date: 20121031
  Transmission Date: 20140127
  Serious: Yes (Hospitalization)
  Sender: FDA-Public Use
  Company Number: PHEH2012US016203

PATIENT
  Age: 59 Year
  Sex: Male

DRUGS (5)
  1. GILENYA (FTY) CAPSULE, 0.5MG [Suspect]
     Indication: MULTIPLE SCLEROSIS
     Route: 048
     Dates: start: 20110830, end: 20120816
  2. PROVIGIL (MODAFINIL) [Concomitant]
  3. OXYMORPHONE (OXYMORPHONE) [Concomitant]
  4. CYMBALTA (DULOXETINE HYDROCHLORIDE) [Concomitant]
  5. SENNA (SENNA, SENNA ALEXANDRINA) [Concomitant]

REACTIONS (2)
  - Cellulitis [None]
  - Oedema peripheral [None]
